FAERS Safety Report 9119657 (Version 1)
Quarter: 2013Q1

REPORT INFORMATION
  Report Type: Spontaneous
  Country: GB (occurrence: GB)
  Receive Date: 20130226
  Receipt Date: 20130226
  Transmission Date: 20140127
  Serious: Yes (Hospitalization)
  Sender: FDA-Public Use
  Company Number: GB-TEVA-382444ISR

PATIENT
  Age: 11 Year
  Sex: Female
  Weight: 41 kg

DRUGS (9)
  1. VINCRISTINE [Suspect]
     Indication: NEOPLASM MALIGNANT
     Route: 042
     Dates: start: 20120809
  2. DOXORUBICIN [Suspect]
     Indication: NEOPLASM MALIGNANT
     Route: 042
     Dates: start: 20120810
  3. ACTINOMYCIN D [Suspect]
     Indication: NEOPLASM MALIGNANT
     Route: 042
     Dates: start: 20120809
  4. IFOSFAMIDE [Suspect]
     Indication: NEOPLASM MALIGNANT
     Dosage: DAYS 1 AND 2
     Route: 042
     Dates: start: 20120809
  5. LACTULOSE [Concomitant]
     Indication: PRODUCT USED FOR UNKNOWN INDICATION
     Dates: start: 20121011
  6. LISINOPRIL [Concomitant]
     Indication: PRODUCT USED FOR UNKNOWN INDICATION
     Dates: start: 20121031
  7. MAGNESIUM GLYCEROPHOSPHATE [Concomitant]
     Indication: PRODUCT USED FOR UNKNOWN INDICATION
     Dates: start: 20121009
  8. MELATONIN [Concomitant]
     Indication: PRODUCT USED FOR UNKNOWN INDICATION
     Dates: start: 20121124
  9. CO-TRIMOXAZOLE [Concomitant]
     Indication: PRODUCT USED FOR UNKNOWN INDICATION
     Dates: start: 20120820

REACTIONS (1)
  - Febrile neutropenia [Recovered/Resolved]
